FAERS Safety Report 9688490 (Version 1)
Quarter: 2013Q4

REPORT INFORMATION
  Report Type: Spontaneous
  Country: IN (occurrence: IN)
  Receive Date: 20131114
  Receipt Date: 20131114
  Transmission Date: 20140711
  Serious: Yes (Other)
  Sender: FDA-Public Use
  Company Number: IN-009507513-1311IND004623

PATIENT
  Age: 56 Year
  Sex: 0

DRUGS (1)
  1. JANUMET [Suspect]
     Dosage: FREQUENCY- 1

REACTIONS (1)
  - Convulsion [Unknown]
